FAERS Safety Report 6431242-1 (Version None)
Quarter: 2009Q4

REPORT INFORMATION
  Report Type: 
  Country: None (occurrence: None)
  Receive Date: 20091106
  Receipt Date: 20091027
  Transmission Date: 20100525
  Serious: Yes (Other)
  Sender: FDA-Public Use
  Company Number: GB-PFIZER INC-2009289451

PATIENT
  Age: 43 Year
  Sex: Male

DRUGS (2)
  1. CHAMPIX [Suspect]
     Indication: SMOKING CESSATION THERAPY
     Dosage: 0.5 MG, 1X/DAY
  2. SULPIRIDE [Concomitant]
     Indication: TOURETTE'S DISORDER

REACTIONS (2)
  - DEPRESSED MOOD [None]
  - TOURETTE'S DISORDER [None]
